FAERS Safety Report 9531384 (Version 1)
Quarter: 2013Q3

REPORT INFORMATION
  Report Type: Spontaneous
  Country: US (occurrence: None)
  Receive Date: 20130916
  Receipt Date: 20130916
  Transmission Date: 20140515
  Serious: Yes (Disabling, Other)
  Sender: FDA-Public Use
  Company Number: None

PATIENT
  Age: 37 Year
  Sex: Female
  Weight: 61.69 kg

DRUGS (1)
  1. OXYCONTIN [Suspect]
     Indication: PAIN
     Dosage: 2 PILLS TWICE DAILY TAKEN BY MOUTH
     Dates: start: 20130914, end: 20130915

REACTIONS (4)
  - Vomiting [None]
  - Renal pain [None]
  - Product formulation issue [None]
  - Product substitution issue [None]
